FAERS Safety Report 5675676-1 (Version None)
Quarter: 2008Q1

REPORT INFORMATION
  Report Type: 
  Country: None (occurrence: None)
  Receive Date: 20080321
  Receipt Date: 20080312
  Transmission Date: 20080703
  Serious: Yes (Other)
  Sender: FDA-Public Use
  Company Number: PHEH2008US02788

PATIENT
  Sex: Female

DRUGS (4)
  1. GLEEVEC [Suspect]
     Dosage: MATERNAL DOSE: 400MG/DAY
     Route: 064
     Dates: start: 20020101, end: 20070807
  2. GLEEVEC [Suspect]
     Dosage: MATERNAL DOSE: 600MG/DAY
     Route: 064
     Dates: start: 20070807, end: 20071004
  3. GLEEVEC [Suspect]
     Dosage: MATERNAL DOSE: 800MG/DAY
     Route: 064
     Dates: start: 20071004, end: 20071218
  4. GLEEVEC [Suspect]
     Dosage: MATERNAL DOSE: 400MG/DAY
     Route: 064
     Dates: start: 20071218, end: 20080124

REACTIONS (2)
  - DRUG EXPOSURE DURING PREGNANCY [None]
  - PREMATURE BABY [None]
